FAERS Safety Report 7271007-4 (Version None)
Quarter: 2011Q1

REPORT INFORMATION
  Report Type: 
  Country: None (occurrence: None)
  Receive Date: 20110202
  Receipt Date: 20110119
  Transmission Date: 20110831
  Serious: Yes (Hospitalization)
  Sender: FDA-Public Use
  Company Number: SE-AMGEN-SWECT2011005173

PATIENT
  Age: 64 Year
  Sex: Female

DRUGS (2)
  1. ETANERCEPT [Suspect]
     Indication: ANKYLOSING SPONDYLITIS
     Dosage: 50 MG, QWK
     Route: 058
     Dates: start: 20081030
  2. METHOTREXATE [Suspect]
     Indication: SPONDYLITIS
     Dosage: 20 MG, WEEKLY
     Route: 048
     Dates: start: 20081215

REACTIONS (2)
  - DYSPEPSIA [None]
  - CHEST DISCOMFORT [None]
